FAERS Safety Report 5002864-X (Version None)
Quarter: 2006Q2

REPORT INFORMATION
  Report Type: 
  Country: None (occurrence: None)
  Receive Date: 20060512
  Receipt Date: 20060426
  Transmission Date: 20061013
  Serious: Yes (Death, Other)
  Sender: FDA-Public Use
  Company Number: GB200604003126

PATIENT
  Age: 39 Year

DRUGS (1)
  1. XIGRIS [Suspect]
     Indication: SEPSIS
     Dosage: 24 UG/KG/HR,
     Dates: start: 20060310

REACTIONS (7)
  - CONVULSION [None]
  - DISSEMINATED INTRAVASCULAR COAGULATION [None]
  - HAEMORRHAGIC FEVER [None]
  - PUPIL FIXED [None]
  - RECTAL HAEMORRHAGE [None]
  - SUBARACHNOID HAEMORRHAGE [None]
  - VAGINAL HAEMORRHAGE [None]
